FAERS Safety Report 7062184-9 (Version None)
Quarter: 2010Q4

REPORT INFORMATION
  Report Type: 
  Country: None (occurrence: None)
  Receive Date: 20101026
  Receipt Date: 20101012
  Transmission Date: 20110411
  Serious: Yes (Hospitalization, Other)
  Sender: FDA-Public Use
  Company Number: GB-JNJFOC-20101006243

PATIENT
  Age: 57 Year
  Sex: Male

DRUGS (12)
  1. MICONAZOLE [Suspect]
     Indication: KERATITIS FUNGAL
     Route: 042
  2. MICONAZOLE [Suspect]
     Route: 042
  3. MICONAZOLE [Suspect]
     Route: 042
  4. MICONAZOLE [Suspect]
     Route: 057
  5. MICONAZOLE [Suspect]
     Route: 057
  6. MICONAZOLE [Suspect]
     Route: 047
  7. DEXAMETHASONE [Suspect]
     Indication: ULCERATIVE KERATITIS
     Route: 065
  8. DEXAMETHASONE [Suspect]
     Route: 065
  9. ACYCLOVIR SODIUM [Suspect]
     Indication: ULCERATIVE KERATITIS
  10. ITRACONAZOLE [Concomitant]
     Indication: KERATITIS FUNGAL
     Route: 048
  11. ITRACONAZOLE [Concomitant]
     Route: 048
  12. ITRACONAZOLE [Concomitant]
     Route: 048

REACTIONS (5)
  - DEPRESSION [None]
  - ENDOPHTHALMITIS [None]
  - KERATITIS FUNGAL [None]
  - NAUSEA [None]
  - OFF LABEL USE [None]
